FAERS Safety Report 4462020-0 (Version None)
Quarter: 2004Q3

REPORT INFORMATION
  Report Type: 
  Country: None (occurrence: None)
  Receive Date: 20040923
  Receipt Date: 20040908
  Transmission Date: 20050211
  Serious: Yes (Death)
  Sender: FDA-Public Use
  Company Number: JP-2004-031792

PATIENT
  Age: 49 Year
  Sex: Male

DRUGS (3)
  1. FLUDARA [Suspect]
     Indication: ALLOGENIC BONE MARROW TRANSPLANTATION THERAPY
  2. BUSULFAN [Concomitant]
  3. CYCLOSPORINE [Concomitant]

REACTIONS (5)
  - HAEMOGLOBIN DECREASED [None]
  - HISTIOCYTOSIS HAEMATOPHAGIC [None]
  - METABOLIC ENCEPHALOPATHY [None]
  - NEUROTOXICITY [None]
  - VISION BLURRED [None]
